FAERS Safety Report 19810095 (Version 5)
Quarter: 2021Q4

REPORT INFORMATION
  Report Type: Report from Study
  Country: DO (occurrence: DO)
  Receive Date: 20210909
  Receipt Date: 20211102
  Transmission Date: 20220303
  Serious: Yes (Life-Threatening, Other)
  Sender: FDA-Public Use
  Company Number: NVSC2021DO166258

PATIENT
  Weight: 85.714 kg

DRUGS (4)
  1. ELTROMBOPAG OLAMINE [Suspect]
     Active Substance: ELTROMBOPAG OLAMINE
     Indication: Immune thrombocytopenia
     Dosage: 50 MG, QD (2 OF 25 MG)
     Route: 048
     Dates: start: 20210525, end: 20210609
  2. ELTROMBOPAG OLAMINE [Suspect]
     Active Substance: ELTROMBOPAG OLAMINE
     Dosage: 50 MG, QD
     Route: 048
     Dates: end: 202106
  3. ELTROMBOPAG OLAMINE [Suspect]
     Active Substance: ELTROMBOPAG OLAMINE
     Dosage: 25 MG, BID
     Route: 048
     Dates: end: 20210710
  4. ELTROMBOPAG OLAMINE [Suspect]
     Active Substance: ELTROMBOPAG OLAMINE
     Dosage: 25 MG, BID
     Route: 048
     Dates: end: 202107

REACTIONS (17)
  - Terminal state [Unknown]
  - Feeling abnormal [Unknown]
  - Pain [Unknown]
  - Mouth haemorrhage [Not Recovered/Not Resolved]
  - Condition aggravated [Unknown]
  - Immune thrombocytopenia [Unknown]
  - Platelet count decreased [Unknown]
  - Haematoma [Unknown]
  - Depressed mood [Recovering/Resolving]
  - General physical health deterioration [Unknown]
  - Anxiety [Unknown]
  - Pain in extremity [Not Recovered/Not Resolved]
  - Dizziness [Unknown]
  - Asthenia [Recovering/Resolving]
  - Arthralgia [Unknown]
  - Product supply issue [Unknown]
  - Inappropriate schedule of product administration [Unknown]
